FAERS Safety Report 5018821-3 (Version None)
Quarter: 2006Q2

REPORT INFORMATION
  Report Type: 
  Country: None (occurrence: None)
  Receive Date: 20060606
  Receipt Date: 20060525
  Transmission Date: 20061013
  Serious: Yes (Death)
  Sender: FDA-Public Use
  Company Number: US-JNJFOC-20060600658

PATIENT
  Sex: Male
  Weight: 94 kg

DRUGS (9)
  1. DURAGESIC-100 [Suspect]
     Route: 062
  2. DURAGESIC-100 [Suspect]
     Route: 062
  3. DURAGESIC-100 [Suspect]
     Indication: PAIN
     Route: 062
  4. AMITRIPTYLINE HCL [Concomitant]
     Route: 048
  5. PROVIGIL [Concomitant]
     Dosage: 200 MG 1/2-1 1 IN 1 DAY
     Route: 065
  6. NEURONTIN [Concomitant]
     Route: 065
  7. CELEXA [Concomitant]
     Route: 065
  8. VIOXX [Concomitant]
     Route: 065
  9. AMBIEN [Concomitant]
     Route: 065

REACTIONS (2)
  - DRUG TOXICITY [None]
  - PNEUMONIA [None]
